FAERS Safety Report 9931244 (Version 1)
Quarter: 2014Q1

REPORT INFORMATION
  Report Type: Spontaneous
  Country: CA (occurrence: CA)
  Receive Date: 20140228
  Receipt Date: 20140228
  Transmission Date: 20141002
  Serious: Yes (Other)
  Sender: FDA-Public Use
  Company Number: CA-AMGEN-CANSP2014013995

PATIENT
  Age: 66 Year
  Sex: Female

DRUGS (14)
  1. ENBREL [Suspect]
     Indication: PRODUCT USED FOR UNKNOWN INDICATION
     Dosage: UNK
     Route: 065
  2. ORENCIA [Suspect]
     Indication: PRODUCT USED FOR UNKNOWN INDICATION
     Dosage: UNK
     Route: 065
  3. ACTEMRA [Suspect]
     Indication: RHEUMATOID ARTHRITIS
     Dosage: 800 MG, Q4WK
     Route: 065
     Dates: start: 20130627, end: 20131118
  4. HUMIRA [Suspect]
     Indication: PRODUCT USED FOR UNKNOWN INDICATION
     Dosage: UNK
     Route: 065
  5. CRESTOR [Concomitant]
     Dosage: UNK
  6. SULFASALAZINE [Concomitant]
     Dosage: UNK
  7. VITAMIN D                          /00107901/ [Concomitant]
     Dosage: UNK
  8. FLOVENT [Concomitant]
     Dosage: UNK
  9. FOLIC ACID [Concomitant]
     Dosage: UNK
  10. SALBUTAMOL [Concomitant]
     Dosage: UNK
  11. METHOTREXATE [Concomitant]
     Dosage: UNK
  12. PANTOLOC                           /01263204/ [Concomitant]
     Dosage: UNK
  13. ASA [Concomitant]
     Dosage: UNK
  14. MET                                /00012501/ [Concomitant]
     Dosage: UNK

REACTIONS (3)
  - Drug hypersensitivity [Unknown]
  - Rash [Unknown]
  - Burning sensation [Unknown]
